FAERS Safety Report 21345032 (Version 1)
Quarter: 2022Q3

REPORT INFORMATION
  Report Type: Spontaneous
  Country: US (occurrence: US)
  Receive Date: 20220916
  Receipt Date: 20220916
  Transmission Date: 20221026
  Serious: No
  Sender: FDA-Public Use
  Company Number: US-BRISTOL-MYERS SQUIBB COMPANY-2022-107037

PATIENT
  Age: 55 Year
  Sex: Male

DRUGS (1)
  1. POMALYST [Suspect]
     Active Substance: POMALIDOMIDE
     Indication: Plasma cell myeloma
     Dosage: FREQUENCY: TAKE 1 CAPSULE (4MG) BY MOUTH EVERY MORNING FOR 21 DAYS ON AND 7 DAYS OFF.
     Route: 048
     Dates: start: 20210226

REACTIONS (1)
  - White blood cell count decreased [Recovering/Resolving]
